FAERS Safety Report 8102534-5 (Version None)
Quarter: 2012Q1

REPORT INFORMATION
  Report Type: 
  Country: None (occurrence: None)
  Receive Date: 20120126
  Receipt Date: 20120113
  Transmission Date: 20120608
  Serious: Yes (Death)
  Sender: FDA-Public Use
  Company Number: 110423

PATIENT
  Age: 87 Year
  Sex: Male

DRUGS (3)
  1. MEDICATIONS FOR ALZHEIMER'S [Concomitant]
  2. PLAVIX [Concomitant]
  3. GOLYTELY [Suspect]
     Indication: OFF LABEL USE
     Dosage: NG
     Route: 050
     Dates: start: 20111101

REACTIONS (4)
  - ORGAN FAILURE [None]
  - RENAL FAILURE [None]
  - CARDIAC FAILURE [None]
  - BLOOD PRESSURE DECREASED [None]
